FAERS Safety Report 10495886 (Version 1)
Quarter: 2014Q4

REPORT INFORMATION
  Report Type: Spontaneous
  Country: US (occurrence: US)
  Receive Date: 20141003
  Receipt Date: 20141003
  Transmission Date: 20150528
  Serious: Yes (Other)
  Sender: FDA-Public Use
  Company Number: US-PFIZER INC-2014270015

PATIENT
  Age: 64 Year
  Sex: Male
  Weight: 74.83 kg

DRUGS (4)
  1. NEURONTIN [Suspect]
     Active Substance: GABAPENTIN
     Indication: CHEST PAIN
  2. BUPROPION [Concomitant]
     Active Substance: BUPROPION
     Indication: DEPRESSION
     Dosage: 450 MG, 1X/DAY
  3. BUSPIRONE [Concomitant]
     Active Substance: BUSPIRONE HYDROCHLORIDE
     Indication: ANXIETY
     Dosage: 30MG IN THE MORNING AND 15MG AT NIGHT, 2X/DAY
  4. NEURONTIN [Suspect]
     Active Substance: GABAPENTIN
     Indication: DRUG DEPENDENCE
     Dosage: 2000-2400MG, 1X/DAY
     Route: 048

REACTIONS (5)
  - Drug dependence [Unknown]
  - Muscle spasms [Unknown]
  - Off label use [Unknown]
  - Abdominal rigidity [Unknown]
  - Seizure [Unknown]
